FAERS Safety Report 18362820 (Version 3)
Quarter: 2021Q2

REPORT INFORMATION
  Report Type: Spontaneous
  Country: JP (occurrence: JP)
  Receive Date: 20201008
  Receipt Date: 20210409
  Transmission Date: 20210717
  Serious: Yes (Hospitalization, Disabling)
  Sender: FDA-Public Use
  Company Number: JP-ABBVIE-20K-087-3593369-00

PATIENT
  Age: 71 Year
  Sex: Female
  Weight: 48.5 kg

DRUGS (16)
  1. POPSCAINE [Suspect]
     Active Substance: LEVOBUPIVACAINE HYDROCHLORIDE
     Dosage: 0.75%, 12.5 MG
     Route: 008
     Dates: start: 20200410, end: 20200410
  2. POPSCAINE [Suspect]
     Active Substance: LEVOBUPIVACAINE HYDROCHLORIDE
     Dosage: 0.25%, 4.5 ML/HOUR
     Route: 008
     Dates: start: 20200410, end: 20200410
  3. ANAPEINE [Suspect]
     Active Substance: ROPIVACAINE HYDROCHLORIDE
     Dosage: 0.75%, 15 MG
     Route: 008
     Dates: start: 20191216, end: 20191216
  4. POPSCAINE [Suspect]
     Active Substance: LEVOBUPIVACAINE HYDROCHLORIDE
     Indication: ANALGESIC THERAPY
     Dosage: 0.75%, 17.5 MG
     Route: 008
     Dates: start: 20200410, end: 20200410
  5. FENTANYL. [Concomitant]
     Active Substance: FENTANYL
     Dosage: 18 MCG/HOUR
     Route: 008
     Dates: start: 20191216, end: 20191218
  6. ROCURONIUM [Concomitant]
     Active Substance: ROCURONIUM BROMIDE
     Indication: HYPOTONIA
     Dosage: 1?5 ML, 7 TIMES
     Route: 042
     Dates: start: 20191216, end: 20191216
  7. POPSCAINE [Suspect]
     Active Substance: LEVOBUPIVACAINE HYDROCHLORIDE
     Indication: EPIDURAL ANAESTHESIA
     Dosage: 0.25%, 4.5 ML/HOUR
     Route: 008
     Dates: start: 20191216, end: 20191216
  8. SUPRANE [Concomitant]
     Active Substance: DESFLURANE
     Indication: MAINTENANCE OF ANAESTHESIA
     Route: 055
     Dates: start: 20191216, end: 20191216
  9. ANAPEINE [Suspect]
     Active Substance: ROPIVACAINE HYDROCHLORIDE
     Indication: ANALGESIC THERAPY
     Dosage: 0.75%, 22.5 MG;
     Route: 008
     Dates: start: 20191216, end: 20191216
  10. FENTANYL. [Concomitant]
     Active Substance: FENTANYL
     Indication: ANALGESIC THERAPY
     Route: 008
     Dates: start: 20191216, end: 20191216
  11. EPHEDRINE. [Concomitant]
     Active Substance: EPHEDRINE
     Indication: PRODUCT USED FOR UNKNOWN INDICATION
     Dosage: 4?8 MG, 5 TIMES
     Route: 042
     Dates: start: 20191216, end: 20191216
  12. REMIFENTANIL [Concomitant]
     Active Substance: REMIFENTANIL
     Indication: ANALGESIC THERAPY
     Dosage: 0.05?0.15 MCG/KG/HOUR
     Route: 041
     Dates: start: 20191216, end: 20191216
  13. BRIDION [Concomitant]
     Active Substance: SUGAMMADEX
     Indication: MUSCLE RELAXANT THERAPY
     Route: 042
     Dates: start: 20191216, end: 20191216
  14. PROPOFOL. [Concomitant]
     Active Substance: PROPOFOL
     Indication: INDUCTION OF ANAESTHESIA
     Route: 042
     Dates: start: 20191216, end: 20191216
  15. XYLOCAINE [Concomitant]
     Active Substance: LIDOCAINE HYDROCHLORIDE
     Indication: ANALGESIC THERAPY
     Dosage: 1%, 10 ML
     Route: 058
     Dates: start: 20191216, end: 20191216
  16. DROLEPTAN [Concomitant]
     Active Substance: DROPERIDOL
     Indication: PROPHYLAXIS OF NAUSEA AND VOMITING
     Dosage: 0.09 MG/HOUR
     Route: 008
     Dates: start: 20191216, end: 20191216

REACTIONS (7)
  - Asthenia [Not Recovered/Not Resolved]
  - Bladder disorder [Not Recovered/Not Resolved]
  - Hypoaesthesia [Not Recovered/Not Resolved]
  - Cauda equina syndrome [Not Recovered/Not Resolved]
  - Diplegia [Not Recovered/Not Resolved]
  - Anorectal disorder [Not Recovered/Not Resolved]
  - Monoplegia [Not Recovered/Not Resolved]

NARRATIVE: CASE EVENT DATE: 20191218
